FAERS Safety Report 17785783 (Version 1)
Quarter: 2020Q2

REPORT INFORMATION
  Report Type: Report from Study
  Country: FR (occurrence: FR)
  Receive Date: 20200514
  Receipt Date: 20200514
  Transmission Date: 20200714
  Serious: Yes (Hospitalization, Other)
  Sender: FDA-Public Use
  Company Number: FR-SAMSUNG BIOEPIS-SB-2020-16426

PATIENT
  Age: 58 Year
  Sex: Male

DRUGS (1)
  1. FLIXABI [Suspect]
     Active Substance: INFLIXIMAB
     Indication: PRODUCT USED FOR UNKNOWN INDICATION
     Dosage: UNKNOWN
     Route: 065
     Dates: start: 20180409

REACTIONS (4)
  - Tympanic membrane perforation [Unknown]
  - Otitis media [Unknown]
  - Hypoacusis [Unknown]
  - Vertigo [Unknown]

NARRATIVE: CASE EVENT DATE: 20181022
